FAERS Safety Report 11911406 (Version 1)
Quarter: 2016Q1

REPORT INFORMATION
  Report Type: Spontaneous
  Country: US (occurrence: US)
  Receive Date: 20160112
  Receipt Date: 20160112
  Transmission Date: 20160526
  Serious: Yes (Other)
  Sender: FDA-Public Use
  Company Number: US-BAYER-2016-004757

PATIENT
  Sex: Male

DRUGS (5)
  1. XARELTO [Suspect]
     Active Substance: RIVAROXABAN
     Dosage: 20 MG, BID
  2. VIAGRA [Suspect]
     Active Substance: SILDENAFIL CITRATE
  3. BAYER LOW DOSE [Suspect]
     Active Substance: ASPIRIN
     Dosage: 1 DF, BID
  4. FISH OIL [Suspect]
     Active Substance: FISH OIL
     Dosage: 1000 MG, BID
  5. AMIODARONE [Suspect]
     Active Substance: AMIODARONE
     Dosage: 200 MG, QD

REACTIONS (2)
  - Optic ischaemic neuropathy [None]
  - Visual impairment [None]

NARRATIVE: CASE EVENT DATE: 20151011
